FAERS Safety Report 7125138-X (Version None)
Quarter: 2010Q4

REPORT INFORMATION
  Report Type: 
  Country: None (occurrence: None)
  Receive Date: 20101129
  Receipt Date: 20101111
  Transmission Date: 20110411
  Serious: Yes (Other)
  Sender: FDA-Public Use
  Company Number: CH-AMGEN GMBH-CHESP2010000241

PATIENT

DRUGS (2)
  1. PROLIA [Suspect]
     Indication: OSTEOPOROSIS POSTMENOPAUSAL
     Dosage: 60 MG, UNK
     Dates: start: 20101012, end: 20101012
  2. OPIATES [Concomitant]

REACTIONS (2)
  - HYPERPARATHYROIDISM SECONDARY [None]
  - RENAL FAILURE [None]
